FAERS Safety Report 16289722 (Version 1)
Quarter: 2019Q2

REPORT INFORMATION
  Report Type: Spontaneous
  Country: GB (occurrence: GB)
  Receive Date: 20190509
  Receipt Date: 20190509
  Transmission Date: 20190711
  Serious: Yes (Hospitalization)
  Sender: FDA-Public Use
  Company Number: GB-FERRINGPH-2019FE02417

PATIENT

DRUGS (2)
  1. DOCUSOL [Concomitant]
     Active Substance: DOCUSATE SODIUM
     Dosage: 12.5MG/5ML - REGULAR MEDICINE HAS NOT BEEN PRESCRIBED SINCE ADMISSION
     Route: 048
  2. DESMOMELT [Suspect]
     Active Substance: DESMOPRESSIN
     Indication: ENURESIS
     Dosage: 240 ?G, 1 TIME DAILY AT NIGHT
     Route: 060

REACTIONS (2)
  - Hyponatraemic encephalopathy [Recovering/Resolving]
  - Hyponatraemia [Recovering/Resolving]

NARRATIVE: CASE EVENT DATE: 20190401
